FAERS Safety Report 9687520 (Version 1)
Quarter: 2013Q4

REPORT INFORMATION
  Report Type: Report from Study
  Country: CA (occurrence: CA)
  Receive Date: 20131114
  Receipt Date: 20131114
  Transmission Date: 20140711
  Serious: Yes (Other)
  Sender: FDA-Public Use
  Company Number: CA-JNJFOC-20131105090

PATIENT
  Age: 62 Year
  Sex: Male
  Weight: 94.2 kg

DRUGS (10)
  1. REMICADE [Suspect]
     Indication: CROHN^S DISEASE
     Route: 042
     Dates: start: 20070201
  2. JANUVIA [Concomitant]
     Route: 065
  3. ZANTAC [Concomitant]
     Route: 065
  4. PREVACID [Concomitant]
     Route: 065
  5. ATIVAN [Concomitant]
     Route: 065
  6. TYLENOL [Concomitant]
     Route: 065
  7. ATACAND [Concomitant]
     Route: 065
  8. CRESTOR [Concomitant]
     Route: 065
  9. METFORMIN [Concomitant]
     Route: 065
  10. PERCOCET [Concomitant]
     Route: 065

REACTIONS (1)
  - Fistula [Recovering/Resolving]
